FAERS Safety Report 17786779 (Version 1)
Quarter: 2020Q2

REPORT INFORMATION
  Report Type: Report from Study
  Country: FR (occurrence: FR)
  Receive Date: 20200514
  Receipt Date: 20200514
  Transmission Date: 20200714
  Serious: Yes (Death, Other)
  Sender: FDA-Public Use
  Company Number: FR-ROCHE-2597564

PATIENT

DRUGS (4)
  1. ATEZOLIZUMAB. [Suspect]
     Active Substance: ATEZOLIZUMAB
     Indication: NEOPLASM MALIGNANT
     Route: 041
  2. IPILIMUMAB [Suspect]
     Active Substance: IPILIMUMAB
     Indication: NEOPLASM MALIGNANT
     Route: 041
  3. PEMBROLIZUMAB. [Suspect]
     Active Substance: PEMBROLIZUMAB
     Indication: NEOPLASM MALIGNANT
     Route: 041
  4. NIVOLUMAB [Suspect]
     Active Substance: NIVOLUMAB
     Indication: NEOPLASM MALIGNANT
     Route: 041

REACTIONS (12)
  - Cardiac death [Fatal]
  - Arrhythmia supraventricular [Unknown]
  - Cardiac failure [Unknown]
  - Pericardial effusion [Unknown]
  - Stress cardiomyopathy [Unknown]
  - Cardiogenic shock [Unknown]
  - Acute coronary syndrome [Unknown]
  - Left ventricular dysfunction [Unknown]
  - Immune system disorder [Unknown]
  - Myocarditis [Unknown]
  - Cardiac arrest [Unknown]
  - Bundle branch block right [Unknown]
